FAERS Safety Report 5339029-8 (Version None)
Quarter: 2007Q2

REPORT INFORMATION
  Report Type: 
  Country: None (occurrence: None)
  Receive Date: 20070402
  Receipt Date: 20061222
  Transmission Date: 20071010
  Serious: Yes (Other)
  Sender: FDA-Public Use
  Company Number: 145708USA

PATIENT
  Sex: Female

DRUGS (12)
  1. RIBAVIRIN [Suspect]
     Dosage: ORAL
     Route: 048
     Dates: start: 20060402, end: 20060427
  2. PEGASYS [Suspect]
     Dosage: 180 MCG/WEEK (ONCE A WEEK), SUBCUTANEOUS
     Route: 058
     Dates: start: 20060402, end: 20060423
  3. FLUOXETINE HYROCHLORIDE [Concomitant]
  4. ALENDRONATE SODIUM [Concomitant]
  5. AFLEXA/01555401/ [Concomitant]
  6. VALACYCLOVIR HCL [Concomitant]
  7. SUMATRIPTAN SUCCINATE [Concomitant]
  8. CELECOXIB [Concomitant]
  9. CITALOPRAM HYDROBROMIDE [Concomitant]
  10. LORAZEPAM [Concomitant]
  11. TRAZODONE HYDROCHLORIDE [Concomitant]
  12. CHROMIUM PICOLINATE [Concomitant]

REACTIONS (2)
  - DEPRESSION [None]
  - NEUTROPENIA [None]
